FAERS Safety Report 9181507 (Version 3)
Quarter: 2013Q2

REPORT INFORMATION
  Report Type: Spontaneous
  Country: US (occurrence: US)
  Receive Date: 20130322
  Receipt Date: 20130521
  Transmission Date: 20140414
  Serious: Yes (Other)
  Sender: FDA-Public Use
  Company Number: US-PFIZER INC-2013091588

PATIENT
  Sex: Female

DRUGS (3)
  1. ZOLOFT [Suspect]
     Dosage: UNK
  2. RISPERIDONE [Suspect]
     Indication: DEPRESSION
     Dosage: 0.5 MG, 2X/DAY
     Dates: start: 20130422
  3. ABILIFY [Suspect]
     Dosage: 5 MG DAILY

REACTIONS (5)
  - Depression [Unknown]
  - Blood cholesterol increased [Unknown]
  - Drug ineffective [Unknown]
  - Asthenia [Unknown]
  - Social avoidant behaviour [Unknown]
